FAERS Safety Report 5959060-9 (Version None)
Quarter: 2008Q4

REPORT INFORMATION
  Report Type: 
  Country: None (occurrence: None)
  Receive Date: 20081120
  Receipt Date: 20081112
  Transmission Date: 20090506
  Serious: Yes (Hospitalization)
  Sender: FDA-Public Use
  Company Number: BR-ABBOTT-08P-020-0487065-00

PATIENT
  Sex: Male

DRUGS (8)
  1. VALPROATE SODIUM [Suspect]
     Indication: SOTOS' SYNDROME
     Route: 048
     Dates: start: 19900101, end: 19980101
  2. VALPROATE SODIUM [Suspect]
     Route: 048
     Dates: start: 19980101, end: 20081014
  3. VALPROATE SODIUM [Suspect]
     Route: 048
     Dates: start: 20081015, end: 20081023
  4. VALPROATE SODIUM [Suspect]
     Route: 048
     Dates: start: 20081024
  5. LEVOMEPROMAZINE [Suspect]
     Indication: SOTOS' SYNDROME
     Route: 048
     Dates: start: 20071001
  6. LEVOMEPROMAZINE [Suspect]
     Route: 048
  7. LEVOMEPROMAZINE [Suspect]
     Route: 048
  8. LEVOMEPROMAZINE [Suspect]
     Route: 048
     Dates: end: 20081031

REACTIONS (4)
  - ABASIA [None]
  - ACCIDENTAL OVERDOSE [None]
  - ILEUS PARALYTIC [None]
  - MUSCULOSKELETAL STIFFNESS [None]
